FAERS Safety Report 16313168 (Version 4)
Quarter: 2020Q3

REPORT INFORMATION
  Report Type: Report from Study
  Country: US (occurrence: US)
  Receive Date: 20190515
  Receipt Date: 20200710
  Transmission Date: 20201102
  Serious: Yes (Disabling)
  Sender: FDA-Public Use
  Company Number: US-SA-2018SA208200

PATIENT

DRUGS (2)
  1. ALEMTUZUMAB [Suspect]
     Active Substance: ALEMTUZUMAB
     Indication: MULTIPLE SCLEROSIS
     Dosage: 12 MG, QD
     Route: 041
     Dates: start: 20180709, end: 20180713
  2. MIDODRINE HCL [Concomitant]
     Active Substance: MIDODRINE HYDROCHLORIDE
     Indication: BLOOD PRESSURE MANAGEMENT
     Dosage: 5 UNK
     Route: 065

REACTIONS (17)
  - Asthenia [Recovering/Resolving]
  - Dyspnoea [Unknown]
  - Dysstasia [Unknown]
  - Diarrhoea [Unknown]
  - Loss of personal independence in daily activities [Unknown]
  - Fatigue [Not Recovered/Not Resolved]
  - Feeling abnormal [Not Recovered/Not Resolved]
  - Memory impairment [Not Recovered/Not Resolved]
  - Gait inability [Recovering/Resolving]
  - Asthma [Not Recovered/Not Resolved]
  - Oligomenorrhoea [Not Recovered/Not Resolved]
  - Cerebral disorder [Not Recovered/Not Resolved]
  - Weight increased [Unknown]
  - Illness [Not Recovered/Not Resolved]
  - Nasopharyngitis [Not Recovered/Not Resolved]
  - Nausea [Recovered/Resolved]
  - Alopecia [Not Recovered/Not Resolved]

NARRATIVE: CASE EVENT DATE: 201807
